FAERS Safety Report 4318555-4 (Version None)
Quarter: 2004Q1

REPORT INFORMATION
  Report Type: 
  Country: None (occurrence: None)
  Receive Date: 20040316
  Receipt Date: 20040316
  Transmission Date: 20041129
  Serious: Yes (Other)
  Sender: FDA-Public Use
  Company Number: None

PATIENT
  Age: 41 Year
  Sex: Female
  Weight: 59 kg

DRUGS (2)
  1. POVIDONE IODINE [Suspect]
     Dosage: 10% TOPICAL X 1
     Route: 061
     Dates: start: 20040210
  2. NS [Concomitant]

REACTIONS (3)
  - APPLICATION SITE ERYTHEMA [None]
  - APPLICATION SITE PRURITUS [None]
  - PHARMACEUTICAL PRODUCT COMPLAINT [None]
